FAERS Safety Report 4808955-8 (Version None)
Quarter: 2005Q4

REPORT INFORMATION
  Report Type: 
  Country: None (occurrence: None)
  Receive Date: 20051021
  Receipt Date: 20030516
  Transmission Date: 20060501
  Serious: No
  Sender: FDA-Public Use
  Company Number: AU_030506307

PATIENT
  Sex: Female

DRUGS (1)
  1. ZYPREXA [Suspect]
     Indication: SCHIZOPHRENIA, PARANOID TYPE
     Dosage: 20 MG/DAY
     Route: 048

REACTIONS (2)
  - MONOCYTOSIS [None]
  - STOMATOCYTES PRESENT [None]
